FAERS Safety Report 10541241 (Version 1)
Quarter: 2014Q4

REPORT INFORMATION
  Report Type: Spontaneous
  Country: US (occurrence: None)
  Receive Date: 20141010
  Receipt Date: 20141010
  Transmission Date: 20150529
  Serious: Yes (Other)
  Sender: FDA-Public Use
  Company Number: 163-POMAL-14052451

PATIENT
  Age: 63 Year
  Sex: Male
  Weight: 94.35 kg

DRUGS (11)
  1. POMALYST [Suspect]
     Active Substance: POMALIDOMIDE
     Indication: PLASMA CELL MYELOMA
     Dosage: 4 MG, 21 IN 21 D, PO?
     Route: 048
     Dates: start: 201309
  2. ELAQUIS (APIXABAN) (UNKNOWN) [Concomitant]
  3. METFORMIN (METFORMIN) (UNKNOWN) [Concomitant]
  4. LANTUS (INSULIN GLARGINE) (UNKNOWN) [Concomitant]
  5. DEXAMETHASONE (DEXAMETHASONE) (UNKNOWN) [Concomitant]
     Active Substance: DEXAMETHASONE
  6. CARVEDIOLOL (CARVEDILOL) (UNKNOWN) [Concomitant]
  7. MULTAQ (DRONEDARONE HYDROCHLORIDE) (UNKNOWN) [Concomitant]
  8. NORVASC (AMLODIPINE BESILATE) (UNKNOWN) [Concomitant]
  9. ACYCLOVIR (ACICLOVIR) (UNKNOWN) [Concomitant]
  10. FISH OIL (FISH OIL) UNKNOWN) [Concomitant]
  11. AMARYL (GLIMEPIRIDE) (UNKNOWN) [Concomitant]

REACTIONS (1)
  - Neutrophil count decreased [None]

NARRATIVE: CASE EVENT DATE: 20140514
